FAERS Safety Report 16925840 (Version 1)
Quarter: 2019Q4

REPORT INFORMATION
  Report Type: Report from Study
  Country: US (occurrence: US)
  Receive Date: 20191016
  Receipt Date: 20191016
  Transmission Date: 20200122
  Serious: Yes (Other)
  Sender: FDA-Public Use
  Company Number: US-GLAXOSMITHKLINE-US2019GSK182971

PATIENT
  Age: 33 Year
  Sex: Female

DRUGS (6)
  1. DHA [Concomitant]
     Active Substance: DIETARY SUPPLEMENT
     Indication: ILL-DEFINED DISORDER
     Dosage: 1 DF, UNK,PILL
     Route: 048
     Dates: start: 20180129
  2. SINGULAIR [Concomitant]
     Active Substance: MONTELUKAST SODIUM
     Indication: ASTHMA
     Dosage: 10 MG, QD
     Route: 048
     Dates: start: 20180215
  3. NORTRIPTYLINE [Concomitant]
     Active Substance: NORTRIPTYLINE
     Indication: MIGRAINE
     Dosage: 1 DF, QD,PILL
     Route: 048
     Dates: start: 20171224, end: 20180120
  4. ZYFLO CR [Concomitant]
     Active Substance: ZILEUTON
     Indication: ASTHMA
     Dosage: 1000 MG, BID
     Route: 048
     Dates: start: 20171224, end: 20180120
  5. TYLENOL [Concomitant]
     Active Substance: ACETAMINOPHEN
     Indication: HEADACHE
     Dosage: 2 DF, UNK,PILL,2 WK
     Route: 048
     Dates: start: 20171224
  6. MEPOLIZUMAB [Suspect]
     Active Substance: MEPOLIZUMAB
     Indication: ASTHMA
     Dosage: UNK
     Dates: start: 20170101

REACTIONS (2)
  - Migraine [Unknown]
  - Exposure during pregnancy [Unknown]

NARRATIVE: CASE EVENT DATE: 20171224
